FAERS Safety Report 16651427 (Version 1)
Quarter: 2019Q3

REPORT INFORMATION
  Report Type: Spontaneous
  Country: US (occurrence: US)
  Receive Date: 20190730
  Receipt Date: 20190730
  Transmission Date: 20191004
  Serious: No
  Sender: FDA-Public Use
  Company Number: None

PATIENT
  Age: 82 Year
  Sex: Male

DRUGS (2)
  1. ANDRODERM [Suspect]
     Active Substance: TESTOSTERONE
     Dates: start: 20190415, end: 20190730
  2. ANDRODERM [Concomitant]
     Active Substance: TESTOSTERONE
     Dates: start: 20190416, end: 20190730

REACTIONS (1)
  - Application site reaction [None]

NARRATIVE: CASE EVENT DATE: 20190701
